FAERS Safety Report 9425718 (Version 3)
Quarter: 2013Q3

REPORT INFORMATION
  Report Type: Spontaneous
  Country: US (occurrence: US)
  Receive Date: 20130729
  Receipt Date: 20130823
  Transmission Date: 20140515
  Serious: Yes (Hospitalization)
  Sender: FDA-Public Use
  Company Number: US-BAXTER-2013BAX028533

PATIENT
  Age: 40 Year
  Sex: Male

DRUGS (2)
  1. DIANEAL PD2 [Suspect]
     Indication: PERITONEAL DIALYSIS
     Route: 033
  2. INSULIN [Suspect]
     Indication: DIABETES MELLITUS
     Route: 065

REACTIONS (7)
  - Infection [Unknown]
  - Peritonitis [Not Recovered/Not Resolved]
  - Blood glucose decreased [Recovering/Resolving]
  - Fall [Recovering/Resolving]
  - Eye injury [Recovering/Resolving]
  - Peritoneal dialysis complication [Unknown]
  - Pain [Unknown]
